FAERS Safety Report 5335009-7 (Version None)
Quarter: 2007Q2

REPORT INFORMATION
  Report Type: 
  Country: None (occurrence: None)
  Receive Date: 20070525
  Receipt Date: 20070524
  Transmission Date: 20071010
  Serious: Yes (Hospitalization)
  Sender: FDA-Public Use
  Company Number: A0652910A

PATIENT
  Sex: Female

DRUGS (3)
  1. NICODERM [Suspect]
     Indication: SMOKING CESSATION THERAPY
     Dosage: 1PAT PER DAY
     Route: 062
     Dates: start: 20050101, end: 20050101
  2. LOPRESSOR [Concomitant]
  3. DIURETIC [Concomitant]
     Indication: DIURETIC THERAPY

REACTIONS (1)
  - CHEST PAIN [None]
